FAERS Safety Report 4620598-8 (Version None)
Quarter: 2005Q1

REPORT INFORMATION
  Report Type: 
  Country: None (occurrence: None)
  Receive Date: 20050324
  Receipt Date: 20050311
  Transmission Date: 20050727
  Serious: No
  Sender: FDA-Public Use
  Company Number: 10564

PATIENT
  Age: 64 Year
  Sex: Female

DRUGS (1)
  1. CARBOPLATIN [Suspect]
     Indication: OVARIAN CANCER
     Dosage: 706 MG, IV
     Route: 042
     Dates: start: 20050228, end: 20050228

REACTIONS (3)
  - FLUSHING [None]
  - TACHYCARDIA [None]
  - VOMITING [None]
